FAERS Safety Report 7928242-9 (Version None)
Quarter: 2011Q4

REPORT INFORMATION
  Report Type: 
  Country: None (occurrence: None)
  Receive Date: 20111118
  Receipt Date: 20111115
  Transmission Date: 20120403
  Serious: Yes (Death, Hospitalization)
  Sender: FDA-Public Use
  Company Number: ES-ROCHE-708598

PATIENT
  Sex: Female
  Weight: 56 kg

DRUGS (4)
  1. CORTICOSTEROID NOS [Suspect]
     Indication: PRODUCT USED FOR UNKNOWN INDICATION
     Route: 065
  2. ACTEMRA [Suspect]
     Indication: RHEUMATOID ARTHRITIS
     Dosage: TEMPORARILY INTERRUPTED. LAST DOSE PRIOR TO SAE: 26 MAY 2010
     Route: 042
     Dates: start: 20090305, end: 20100526
  3. METHOTREXATE [Suspect]
     Indication: RHEUMATOID ARTHRITIS
     Dosage: LAST DOSE PRIOR TO SAE: 26 MAY 2010
     Route: 048
     Dates: start: 20090305, end: 20100526
  4. FLUOXETINE HCL [Suspect]
     Indication: PRODUCT USED FOR UNKNOWN INDICATION
     Route: 065

REACTIONS (3)
  - GASTROINTESTINAL DISORDER [None]
  - CEREBRAL HAEMORRHAGE [None]
  - HYPERTHERMIA MALIGNANT [None]
